FAERS Safety Report 17397158 (Version 1)
Quarter: 2020Q1

REPORT INFORMATION
  Report Type: Spontaneous
  Country: NL (occurrence: NL)
  Receive Date: 20200210
  Receipt Date: 20200210
  Transmission Date: 20200409
  Serious: Yes (Hospitalization, Other)
  Sender: FDA-Public Use
  Company Number: NL-MYLANLABS-2020M1013832

PATIENT
  Sex: Female

DRUGS (1)
  1. BUPRENORPHINE. [Suspect]
     Active Substance: BUPRENORPHINE
     Indication: PRODUCT USED FOR UNKNOWN INDICATION
     Dosage: 5 UG/HR
     Route: 062
     Dates: start: 20191120

REACTIONS (4)
  - Urinary retention [Unknown]
  - Headache [Unknown]
  - Malaise [Unknown]
  - Vomiting [Unknown]
